FAERS Safety Report 22226736 (Version 1)
Quarter: 2023Q2

REPORT INFORMATION
  Report Type: Spontaneous
  Country: US (occurrence: US)
  Receive Date: 20230419
  Receipt Date: 20230419
  Transmission Date: 20230722
  Serious: Yes (Other)
  Sender: FDA-Public Use
  Company Number: US-JNJFOC-20230428397

PATIENT
  Age: 48 Year
  Sex: Male

DRUGS (2)
  1. INVOKANA [Suspect]
     Active Substance: CANAGLIFLOZIN
     Indication: Type 2 diabetes mellitus
     Dosage: EVERY DAY BEFORE THE FIRST MEAL OF THE DAY?START DATE- 31/MAY/2016
     Route: 048
  2. INVOKAMET [Suspect]
     Active Substance: CANAGLIFLOZIN\METFORMIN HYDROCHLORIDE
     Indication: Type 2 diabetes mellitus
     Dosage: 150-1000 MG 1 TABLET BY MOUTH 2 TIMES A DAY
     Route: 048
     Dates: end: 2018

REACTIONS (3)
  - Diabetic foot [Unknown]
  - Diabetic neuropathy [Unknown]
  - Toe amputation [Unknown]

NARRATIVE: CASE EVENT DATE: 20121127
